FAERS Safety Report 4907333-0 (Version None)
Quarter: 2006Q1

REPORT INFORMATION
  Report Type: 
  Country: None (occurrence: None)
  Receive Date: 20060208
  Receipt Date: 20060208
  Transmission Date: 20060701
  Serious: Yes (Hospitalization)
  Sender: FDA-Public Use
  Company Number: None

PATIENT
  Age: 71 Year
  Sex: Male

DRUGS (16)
  1. PHENYTOIN [Suspect]
     Indication: CONVULSION
     Dosage: 300MG  PO  BID
     Route: 048
     Dates: start: 20030723, end: 20051207
  2. ADVAIR DISKUS 100/50 [Concomitant]
  3. ALBUTEROL [Concomitant]
  4. ATROVENT [Concomitant]
  5. AZITHROMYCIN [Concomitant]
  6. CLINDAMYCIN HCL [Concomitant]
  7. DOXYCYCLINE [Concomitant]
  8. ETODOLAC [Concomitant]
  9. FLONASE [Concomitant]
  10. FOSINOPRIL SODIUM [Concomitant]
  11. HYDROCHLOROTHIAZIDE [Concomitant]
  12. PHENYTOIN [Concomitant]
  13. ZOCOR [Concomitant]
  14. TERAZOSIN [Concomitant]
  15. THEOPHYLLINE [Concomitant]
  16. TIOTROPIUM [Concomitant]

REACTIONS (4)
  - COORDINATION ABNORMAL [None]
  - DRUG LEVEL INCREASED [None]
  - LETHARGY [None]
  - NYSTAGMUS [None]
